FAERS Safety Report 8581550-3 (Version None)
Quarter: 2012Q3

REPORT INFORMATION
  Report Type: 
  Country: None (occurrence: None)
  Receive Date: 20120809
  Receipt Date: 20120709
  Transmission Date: 20120928
  Serious: Yes (Death, Life-Threatening)
  Sender: FDA-Public Use
  Company Number: DE-ASTRAZENECA-2012SE55549

PATIENT
  Age: 85 Year
  Sex: Male

DRUGS (5)
  1. HALDOL [Concomitant]
     Route: 048
  2. ASPIRIN [Concomitant]
  3. DIPIPERON [Concomitant]
     Dosage: ON DEMAND
     Route: 048
  4. ARICEPT [Concomitant]
     Indication: DEMENTIA ALZHEIMER'S TYPE
     Route: 048
  5. SEROQUEL [Suspect]
     Indication: SENILE PSYCHOSIS
     Route: 048

REACTIONS (2)
  - ATRIOVENTRICULAR BLOCK COMPLETE [None]
  - OFF LABEL USE [None]
